FAERS Safety Report 8075334-2 (Version None)
Quarter: 2012Q1

REPORT INFORMATION
  Report Type: 
  Country: None (occurrence: None)
  Receive Date: 20120127
  Receipt Date: 20111206
  Transmission Date: 20120608
  Serious: No
  Sender: FDA-Public Use
  Company Number: US-MYLANLABS-2011S1025079

PATIENT
  Age: 84 Year
  Sex: Female

DRUGS (3)
  1. CLONIDINE [Suspect]
     Indication: BLOOD PRESSURE INCREASED
     Dosage: CHANGED QWK
     Route: 062
     Dates: end: 20111206
  2. DIOVAN [Concomitant]
     Indication: BLOOD PRESSURE
     Route: 048
  3. ATENOLOL [Concomitant]
     Indication: BLOOD PRESSURE
     Route: 048

REACTIONS (4)
  - BLOOD PRESSURE INCREASED [None]
  - APPLICATION SITE PRURITUS [None]
  - DRUG INEFFECTIVE [None]
  - DIZZINESS [None]
